FAERS Safety Report 7399230-9 (Version None)
Quarter: 2011Q2

REPORT INFORMATION
  Report Type: 
  Country: None (occurrence: None)
  Receive Date: 20110407
  Receipt Date: 20110401
  Transmission Date: 20111010
  Serious: Yes (Death, Hospitalization, Other)
  Sender: FDA-Public Use
  Company Number: US-CELGENEUS-163-21880-11030284

PATIENT
  Sex: Male

DRUGS (23)
  1. FOLIC ACID [Concomitant]
     Route: 065
  2. WHOLE BLOOD [Concomitant]
     Route: 051
     Dates: start: 20110201, end: 20110201
  3. CALCIUM CITRATE [Concomitant]
     Route: 065
  4. INSULIN(NOVOLOG) [Concomitant]
     Route: 065
  5. ASPIRIN [Concomitant]
     Dosage: 325 MILLIGRAM
     Route: 065
  6. LASIX [Concomitant]
     Dosage: 20 MILLIGRAM
     Route: 065
  7. AMLODIPINE [Concomitant]
     Dosage: 2.5 MILLIGRAM
     Route: 048
  8. LISINOPRIL [Concomitant]
     Dosage: 40 MILLIGRAM
     Route: 065
  9. VITAMIN D [Concomitant]
     Route: 065
  10. PLAQUENIL [Concomitant]
     Dosage: 200 MILLIGRAM
     Route: 065
  11. LOVENOX [Concomitant]
     Route: 065
  12. SIMVASTATIN [Concomitant]
     Dosage: 40 MILLIGRAM
     Route: 065
  13. ACETAMINOPHEN [Concomitant]
     Route: 065
  14. SULFASALAZINE [Concomitant]
     Dosage: 500 MILLIGRAM
     Route: 048
  15. ACTONEL [Concomitant]
     Dosage: 150 MILLIGRAM
     Route: 065
  16. DUONEB [Concomitant]
     Route: 065
  17. PANTOPRAZOLE [Concomitant]
     Route: 065
  18. ZOFRAN [Concomitant]
     Route: 065
  19. AMBIEN [Concomitant]
     Route: 065
  20. REVLIMID [Suspect]
     Indication: MYELODYSPLASTIC SYNDROME
     Dosage: 10 MILLIGRAM
     Route: 048
     Dates: start: 20110131, end: 20110214
  21. METFORMIN [Concomitant]
     Dosage: 500 MILLIGRAM
     Route: 065
  22. MULTI-VITAMINS [Concomitant]
     Route: 065
  23. DETROL LA [Concomitant]
     Route: 065

REACTIONS (2)
  - PNEUMONIA [None]
  - SKIN CANCER [None]
